FAERS Safety Report 15490531 (Version 2)
Quarter: 2019Q1

REPORT INFORMATION
  Report Type: Report from Study
  Country: IN (occurrence: IN)
  Receive Date: 20181011
  Receipt Date: 20190131
  Transmission Date: 20190417
  Serious: Yes (Hospitalization, Other)
  Sender: FDA-Public Use
  Company Number: PHHY2017IN121673

PATIENT
  Age: 36 Year
  Sex: Male
  Weight: 73 kg

DRUGS (8)
  1. SPEXIB [Suspect]
     Active Substance: CERITINIB
     Indication: NON-SMALL CELL LUNG CANCER
     Dosage: 750 MG, QD
     Route: 048
     Dates: start: 20170201, end: 20170608
  2. SPEXIB [Suspect]
     Active Substance: CERITINIB
     Dosage: 600 MG, QD
     Route: 048
     Dates: start: 20170608, end: 20170718
  3. SPEXIB [Suspect]
     Active Substance: CERITINIB
     Dosage: 750 MG, (300MG OD ON TWO CONSECUTIVE DAYS FOLLOWED BY 450 MG ON THIRD DAY)
     Route: 048
     Dates: start: 20171101
  4. SPEXIB [Suspect]
     Active Substance: CERITINIB
     Dosage: 300 MG, QD
     Route: 048
     Dates: start: 20180306
  5. SPEXIB [Suspect]
     Active Substance: CERITINIB
     Dosage: 450 MG, QD
     Route: 048
     Dates: start: 20180824, end: 201901
  6. SPEXIB [Suspect]
     Active Substance: CERITINIB
     Dosage: 450 MG OD ALTERNATE WITH 300 MG OD
     Route: 048
     Dates: start: 20180710, end: 20180823
  7. SPEXIB [Suspect]
     Active Substance: CERITINIB
     Dosage: 400 MG AND 600 MG ON ALTERNATE DAYS
     Route: 048
     Dates: start: 20170718
  8. SPEXIB [Suspect]
     Active Substance: CERITINIB
     Dosage: UNK
     Route: 048
     Dates: start: 20180214, end: 20180710

REACTIONS (12)
  - Vomiting [Unknown]
  - Malignant neoplasm progression [Not Recovered/Not Resolved]
  - Depressed level of consciousness [Not Recovered/Not Resolved]
  - Partial seizures [Recovered/Resolved]
  - Respiratory distress [Not Recovered/Not Resolved]
  - Respiratory arrest [Not Recovered/Not Resolved]
  - Dysarthria [Not Recovered/Not Resolved]
  - Muscular weakness [Not Recovered/Not Resolved]
  - Renal impairment [Not Recovered/Not Resolved]
  - Non-small cell lung cancer [Not Recovered/Not Resolved]
  - Liver function test abnormal [Not Recovered/Not Resolved]
  - Blood uric acid increased [Unknown]

NARRATIVE: CASE EVENT DATE: 201706
